FAERS Safety Report 7045859-7 (Version None)
Quarter: 2010Q4

REPORT INFORMATION
  Report Type: 
  Country: None (occurrence: None)
  Receive Date: 20101014
  Receipt Date: 20101001
  Transmission Date: 20110411
  Serious: Yes (Hospitalization, Other)
  Sender: FDA-Public Use
  Company Number: US-ELI_LILLY_AND_COMPANY-US201010000844

PATIENT
  Age: 57 Year
  Sex: Male

DRUGS (3)
  1. CYMBALTA [Suspect]
     Indication: ANXIETY
     Dosage: 60 MG, EACH MORNING
  2. CYMBALTA [Suspect]
     Dosage: 30 MG, EACH EVENING
  3. DEPAKOTE [Concomitant]

REACTIONS (2)
  - CARDIAC FAILURE [None]
  - ENDOTRACHEAL INTUBATION [None]
